FAERS Safety Report 6593934-3 (Version None)
Quarter: 2010Q1

REPORT INFORMATION
  Report Type: 
  Country: None (occurrence: None)
  Receive Date: 20100222
  Receipt Date: 20100210
  Transmission Date: 20100710
  Serious: Yes (Other)
  Sender: FDA-Public Use
  Company Number: CN-PFIZER INC-2010018614

PATIENT
  Age: 79 Year

DRUGS (1)
  1. ZYVOX [Suspect]

REACTIONS (2)
  - CHEST DISCOMFORT [None]
  - WHEEZING [None]
